FAERS Safety Report 18711733 (Version 1)
Quarter: 2021Q1

REPORT INFORMATION
  Report Type: Spontaneous
  Country: US (occurrence: US)
  Receive Date: 20210106
  Receipt Date: 20210106
  Transmission Date: 20210419
  Serious: Yes (Hospitalization)
  Sender: FDA-Public Use
  Company Number: None

PATIENT
  Age: 51 Year
  Sex: Female

DRUGS (1)
  1. NEUPOGEN [Suspect]
     Active Substance: FILGRASTIM
     Indication: THROMBOCYTOPENIA
     Route: 058
     Dates: start: 202010

REACTIONS (4)
  - Dizziness [None]
  - Asthenia [None]
  - Full blood count decreased [None]
  - Fatigue [None]

NARRATIVE: CASE EVENT DATE: 20201128
